FAERS Safety Report 23227517 (Version 8)
Quarter: 2025Q1

REPORT INFORMATION
  Report Type: Spontaneous
  Country: US (occurrence: US)
  Receive Date: 20231124
  Receipt Date: 20250122
  Transmission Date: 20250409
  Serious: Yes (Hospitalization, Other)
  Sender: SANOFI AVENTIS
  Company Number: US-SA-SAC20231120001633

PATIENT
  Age: 18 Year
  Sex: Male

DRUGS (1)
  1. ALTUVIIIO [Suspect]
     Active Substance: EFANESOCTOCOG ALFA
     Route: 042

REACTIONS (10)
  - Mental disorder [Unknown]
  - Muscle haemorrhage [Unknown]
  - Cerebral haemorrhage [Unknown]
  - Headache [Unknown]
  - Limb injury [Unknown]
  - Traumatic haemorrhage [Recovered/Resolved]
  - Limb injury [Unknown]
  - Traumatic haemorrhage [Recovered/Resolved]
  - Arthralgia [Unknown]
  - Vomiting [Unknown]

NARRATIVE: CASE EVENT DATE: 20231029
